FAERS Safety Report 5712611-1 (Version None)
Quarter: 2008Q2

REPORT INFORMATION
  Report Type: 
  Country: None (occurrence: None)
  Receive Date: 20080422
  Receipt Date: 20080418
  Transmission Date: 20081010
  Serious: Yes (Death)
  Sender: FDA-Public Use
  Company Number: AU-ASTRAZENECA-2008AP02767

PATIENT
  Age: 22001 Day
  Sex: Female
  Weight: 89 kg

DRUGS (4)
  1. NEXIUM [Suspect]
     Route: 048
  2. PREXIGE [Suspect]
     Indication: OSTEOARTHRITIS
     Route: 048
     Dates: start: 20070216, end: 20070618
  3. FISH OIL [Concomitant]
  4. TRAMADOL HCL [Concomitant]
     Route: 048

REACTIONS (2)
  - ACUTE HEPATIC FAILURE [None]
  - SEPSIS [None]
